FAERS Safety Report 20726731 (Version 1)
Quarter: 2022Q2

REPORT INFORMATION
  Report Type: Report from Study
  Country: US (occurrence: US)
  Receive Date: 20220419
  Receipt Date: 20220419
  Transmission Date: 20220720
  Serious: Yes (Other)
  Sender: FDA-Public Use
  Company Number: US-JAZZ-2021-US-021862

PATIENT
  Sex: Female
  Weight: 52.154 kg

DRUGS (11)
  1. XYREM [Suspect]
     Active Substance: SODIUM OXYBATE
     Indication: Narcolepsy
     Dosage: 2.25 GRAM, BID
     Route: 048
     Dates: start: 200809, end: 200811
  2. XYREM [Suspect]
     Active Substance: SODIUM OXYBATE
     Indication: Cataplexy
     Dosage: DOSE ADJUSTMENT
     Route: 048
     Dates: start: 200811, end: 201009
  3. XYREM [Suspect]
     Active Substance: SODIUM OXYBATE
     Indication: Somnolence
     Dosage: 4.5 GRAM, BID
     Route: 048
     Dates: start: 201009
  4. SYNTHROID [Concomitant]
     Active Substance: LEVOTHYROXINE SODIUM
     Dosage: 0000
     Dates: start: 20010101
  5. CELECOXIB [Concomitant]
     Active Substance: CELECOXIB
     Dosage: 0000
     Dates: start: 20150920
  6. IBUPROFEN IB [Concomitant]
     Active Substance: IBUPROFEN
     Dosage: 0000
     Dates: start: 20150920
  7. NUVIGIL [Concomitant]
     Active Substance: ARMODAFINIL
     Dosage: 0000
     Dates: start: 20110225
  8. ADDERALL [Concomitant]
     Active Substance: AMPHETAMINE ASPARTATE\AMPHETAMINE SULFATE\DEXTROAMPHETAMINE SACCHARATE\DEXTROAMPHETAMINE SULFATE
     Dosage: 0000
     Dates: start: 20200615
  9. SOLRIAMFETOL HYDROCHLORIDE [Concomitant]
     Active Substance: SOLRIAMFETOL HYDROCHLORIDE
  10. CITALOPRAM HYDROBROMIDE [Concomitant]
     Active Substance: CITALOPRAM HYDROBROMIDE
  11. LEVOTHYROXINE SODIUM [Concomitant]
     Active Substance: LEVOTHYROXINE SODIUM

REACTIONS (7)
  - Urinary incontinence [Unknown]
  - Spinal laminectomy [Unknown]
  - Post laminectomy syndrome [Unknown]
  - Inguinal hernia [Unknown]
  - Thoracic radiculopathy [Unknown]
  - Facet joint syndrome [Unknown]
  - Lumbosacral radiculopathy [Unknown]
